FAERS Safety Report 24458142 (Version 1)
Quarter: 2024Q4

REPORT INFORMATION
  Report Type: Report from Study
  Country: US (occurrence: US)
  Receive Date: 20241018
  Receipt Date: 20241018
  Transmission Date: 20250115
  Serious: No
  Sender: ROCHE
  Company Number: US-ROCHE-3432091

PATIENT
  Age: 82 Year
  Sex: Female

DRUGS (4)
  1. ACTIVASE [Suspect]
     Active Substance: ALTEPLASE
     Indication: Chronic obstructive pulmonary disease
     Dosage: 6.2 MG IN STERILE WATER 6.2ML BOLUS?(DATE OF SERVICE: 24/AUG/2023 100 MG)
     Route: 065
  2. ACTIVASE [Suspect]
     Active Substance: ALTEPLASE
     Indication: Cerebral infarction
     Dosage: 55MG IN STERILE WATER 55ML INFUSION
     Route: 065
  3. ACTIVASE [Suspect]
     Active Substance: ALTEPLASE
     Indication: Acute left ventricular failure
  4. ACTIVASE [Suspect]
     Active Substance: ALTEPLASE
     Indication: Acute respiratory failure

REACTIONS (2)
  - Off label use [Unknown]
  - No adverse event [Unknown]
